FAERS Safety Report 24186003 (Version 2)
Quarter: 2024Q3

REPORT INFORMATION
  Report Type: Report from Study
  Country: US (occurrence: US)
  Receive Date: 20240807
  Receipt Date: 20240824
  Transmission Date: 20241016
  Serious: Yes (Hospitalization, Other)
  Sender: ABBVIE
  Company Number: US-ABBVIE-5868169

PATIENT
  Age: 82 Year
  Sex: Male
  Weight: 95 kg

DRUGS (8)
  1. VENCLEXTA [Suspect]
     Active Substance: VENETOCLAX
     Indication: Chronic lymphocytic leukaemia
     Dosage: 400 MILLIGRAM
     Route: 048
     Dates: start: 20221024, end: 20240403
  2. VENCLEXTA [Suspect]
     Active Substance: VENETOCLAX
     Indication: Chronic lymphocytic leukaemia
     Dosage: 400 MILLIGRAM
     Route: 048
     Dates: start: 20240506
  3. TAMSULOSIN [Concomitant]
     Active Substance: TAMSULOSIN
     Indication: Prostatic disorder
     Dosage: 0.4 MILLIGRAM
  4. LISINOPRIL [Concomitant]
     Active Substance: LISINOPRIL
     Indication: Blood pressure measurement
     Dosage: 5 MILLIGRAM
  5. ESOMEPRAZOLE [Concomitant]
     Active Substance: ESOMEPRAZOLE
     Indication: Gastrooesophageal reflux disease
     Dosage: 20 MILLIGRAM
  6. ROSUVASTATIN [Concomitant]
     Active Substance: ROSUVASTATIN\ROSUVASTATIN CALCIUM
     Indication: Blood cholesterol
     Dosage: 5 MILLIGRAM
  7. FINASTERIDE [Concomitant]
     Active Substance: FINASTERIDE
     Indication: Prostatic disorder
     Dosage: 5 MILLIGRAM
  8. METOPROLOL [Concomitant]
     Active Substance: METOPROLOL
     Indication: Blood pressure measurement
     Dosage: 25 MILLIGRAM

REACTIONS (3)
  - Atrial fibrillation [Recovered/Resolved]
  - Oedema peripheral [Not Recovered/Not Resolved]
  - Stasis dermatitis [Recovering/Resolving]

NARRATIVE: CASE EVENT DATE: 20240401
